FAERS Safety Report 8261415-7 (Version None)
Quarter: 2012Q2

REPORT INFORMATION
  Report Type: 
  Country: None (occurrence: None)
  Receive Date: 20120405
  Receipt Date: 20120330
  Transmission Date: 20120825
  Serious: Yes (Life-Threatening)
  Sender: FDA-Public Use
  Company Number: JP-PFIZER INC-2012082215

PATIENT
  Age: 21 Month
  Sex: Male
  Weight: 5.8 kg

DRUGS (6)
  1. DORNER [Concomitant]
     Indication: PULMONARY HYPERTENSION
     Dosage: UNK
     Route: 048
     Dates: end: 20110129
  2. SILDENAFIL CITRATE [Suspect]
     Dosage: 3.3 MG, 3X/DAY
     Route: 048
     Dates: start: 20100202, end: 20110129
  3. ALDACTONE [Concomitant]
     Dosage: UNK
     Route: 048
     Dates: end: 20110129
  4. LASIX [Concomitant]
     Dosage: UNK
     Route: 048
     Dates: end: 20110129
  5. PHENOBARBITAL TAB [Concomitant]
     Indication: SEDATION
     Dosage: UNK
     Route: 048
  6. OPALMON [Concomitant]
     Dosage: UNK
     Route: 048
     Dates: end: 20110129

REACTIONS (1)
  - VOLVULUS [None]
